FAERS Safety Report 6939960-3 (Version None)
Quarter: 2010Q3

REPORT INFORMATION
  Report Type: 
  Country: None (occurrence: None)
  Receive Date: 20100825
  Receipt Date: 20100816
  Transmission Date: 20110219
  Serious: Yes (Other)
  Sender: FDA-Public Use
  Company Number: BR-PFIZER INC-2010022002

PATIENT
  Age: 50 Year
  Sex: Female
  Weight: 61 kg

DRUGS (7)
  1. CHAMPIX [Suspect]
     Indication: SMOKING CESSATION THERAPY
     Dosage: 0.5 MG, 1X/DAY
     Route: 048
     Dates: start: 20100101
  2. CHAMPIX [Suspect]
     Dosage: 1 MG, EVERY 12 HOURS
     Route: 048
     Dates: start: 20100101, end: 20100501
  3. CHAMPIX [Suspect]
     Dosage: 1 MG, EVERY 12 HOURS
     Route: 048
     Dates: start: 20100706
  4. DEPAKENE [Concomitant]
     Indication: DEPRESSION
     Dosage: 500 MG, UNK
     Dates: start: 20050101
  5. SERTRALINE HYDROCHLORIDE [Concomitant]
     Indication: DEPRESSION
     Dosage: 50 MG, UNK
     Dates: start: 20050101
  6. NEULEPTIL [Concomitant]
     Indication: DEPRESSION
     Dosage: 10 DROPS, 2X/DAY
     Dates: start: 20050101
  7. RIVOTRIL [Concomitant]
     Indication: DEPRESSION
     Dosage: 2 MG, UNK

REACTIONS (12)
  - ABNORMAL BEHAVIOUR [None]
  - DECREASED APPETITE [None]
  - DEPRESSION [None]
  - DIZZINESS [None]
  - FEAR [None]
  - FEELING ABNORMAL [None]
  - FEELING GUILTY [None]
  - HEART RATE INCREASED [None]
  - NERVOUSNESS [None]
  - PSYCHIATRIC SYMPTOM [None]
  - TREMOR [None]
  - WEIGHT INCREASED [None]
